FAERS Safety Report 17278153 (Version 1)
Quarter: 2020Q1

REPORT INFORMATION
  Report Type: Spontaneous
  Country: TR (occurrence: TR)
  Receive Date: 20200116
  Receipt Date: 20200116
  Transmission Date: 20200409
  Serious: Yes (Life-Threatening, Hospitalization)
  Sender: FDA-Public Use
  Company Number: TR-INCYTE CORPORATION-2020IN000253

PATIENT

DRUGS (1)
  1. JAKAVI [Suspect]
     Active Substance: RUXOLITINIB
     Indication: POLYCYTHAEMIA VERA
     Dosage: 10 MG (1X1)
     Route: 065
     Dates: start: 201702

REACTIONS (2)
  - Off label use [Unknown]
  - Road traffic accident [Unknown]

NARRATIVE: CASE EVENT DATE: 201702
